FAERS Safety Report 8224801-7 (Version None)
Quarter: 2012Q1

REPORT INFORMATION
  Report Type: 
  Country: None (occurrence: None)
  Receive Date: 20120321
  Receipt Date: 20120309
  Transmission Date: 20120608
  Serious: Yes (Hospitalization)
  Sender: FDA-Public Use
  Company Number: US-AMGEN-USASP2011021279

PATIENT
  Age: 52 Year
  Sex: Female

DRUGS (2)
  1. ENBREL [Suspect]
     Dosage: 50 MG, QWK
  2. ENBREL [Suspect]
     Indication: RHEUMATOID ARTHRITIS
     Dosage: 50 MG, QWK
     Dates: start: 20080101, end: 20120301

REACTIONS (10)
  - TOOTH DISORDER [None]
  - DRUG EFFECT DECREASED [None]
  - HEPATIC ENZYME INCREASED [None]
  - BLOOD GLUCOSE DECREASED [None]
  - RESPIRATORY TRACT INFECTION [None]
  - RHEUMATOID ARTHRITIS [None]
  - JOINT INJURY [None]
  - INJECTION SITE PAIN [None]
  - INJECTION SITE HAEMATOMA [None]
  - TRANSIENT ISCHAEMIC ATTACK [None]
